FAERS Safety Report 10080838 (Version 1)
Quarter: 2014Q2

REPORT INFORMATION
  Report Type: Spontaneous
  Country: US (occurrence: None)
  Receive Date: 20140414
  Receipt Date: 20140414
  Transmission Date: 20141212
  Serious: Yes (Other)
  Sender: FDA-Public Use
  Company Number: 2014P1002989

PATIENT
  Sex: Female

DRUGS (1)
  1. PLAQUENIL [Suspect]

REACTIONS (3)
  - Myalgia [None]
  - Dyspnoea [None]
  - Fatigue [None]
